FAERS Safety Report 20108172 (Version 1)
Quarter: 2021Q4

REPORT INFORMATION
  Report Type: Spontaneous
  Country: US (occurrence: US)
  Receive Date: 20211124
  Receipt Date: 20211124
  Transmission Date: 20220303
  Serious: No
  Sender: FDA-Public Use
  Company Number: US-KERYX BIOPHARMACEUTICALS INC.-2021US008048

PATIENT
  Sex: Female

DRUGS (5)
  1. AURYXIA [Suspect]
     Active Substance: TETRAFERRIC TRICITRATE DECAHYDRATE
     Indication: Hyperphosphataemia
     Dosage: 2 GRAM (TABLETS), TID WITH MEALS
     Route: 048
     Dates: start: 202103, end: 20210404
  2. AURYXIA [Suspect]
     Active Substance: TETRAFERRIC TRICITRATE DECAHYDRATE
     Dosage: 3 GRAM (TABLETS), TID WITH MEALS AND 1 TABLET WITH SNACKS
     Route: 048
     Dates: start: 20210405
  3. PERI-COLACE                        /00936101/ [Concomitant]
     Indication: Constipation
     Dosage: UNK
  4. MIRALAX [Concomitant]
     Active Substance: POLYETHYLENE GLYCOL 3350
     Indication: Constipation
     Dosage: 1/2 CUP, QOD
  5. MIRALAX [Concomitant]
     Active Substance: POLYETHYLENE GLYCOL 3350
     Dosage: 1/2 CUP, QD

REACTIONS (3)
  - Melaena [Unknown]
  - Drug ineffective [Unknown]
  - Constipation [Unknown]
